FAERS Safety Report 10171365 (Version 3)
Quarter: 2014Q2

REPORT INFORMATION
  Report Type: Report from Study
  Country: DE (occurrence: DE)
  Receive Date: 20140514
  Receipt Date: 20140606
  Transmission Date: 20141212
  Serious: Yes (Death, Hospitalization)
  Sender: FDA-Public Use
  Company Number: DE-BEH-2014042461

PATIENT
  Age: 59 Year
  Sex: Female
  Weight: 60 kg

DRUGS (4)
  1. PRIVIGEN [Suspect]
     Dates: start: 20140127, end: 20140127
  2. PRIVIGEN [Suspect]
     Indication: CHRONIC LYMPHOCYTIC LEUKAEMIA
     Dates: start: 20140206, end: 20140206
  3. SOLU DECORTIN H [Concomitant]
     Route: 042
     Dates: start: 20140127, end: 20140127
  4. SOLU DECORTIN H [Concomitant]
     Indication: PREMEDICATION
     Route: 042
     Dates: start: 20140206, end: 20140206

REACTIONS (1)
  - Pneumonia [Fatal]
